FAERS Safety Report 5203496-0 (Version None)
Quarter: 2007Q1

REPORT INFORMATION
  Report Type: 
  Country: None (occurrence: None)
  Receive Date: 20070110
  Receipt Date: 20070102
  Transmission Date: 20070707
  Serious: Yes (Other)
  Sender: FDA-Public Use
  Company Number: US-AVENTIS-200710118GDDC

PATIENT
  Sex: Female

DRUGS (8)
  1. FLUOROURACIL [Suspect]
     Indication: BREAST CANCER
     Dosage: DOSE: 600 MG/M2 ON DAY 2
     Route: 042
  2. FLUOROURACIL [Suspect]
     Dosage: DOSE: 300 MG/M2 ON DAYSA 8 AND 9
     Route: 042
  3. METHOTREXATE [Suspect]
     Indication: BREAST CANCER
     Dosage: DOSE: 100 MG/M2 ON DAY 1
     Route: 042
  4. LEUCOVORIN CALCIUM [Suspect]
     Indication: BREAST CANCER
     Dosage: DOSE: 10 MG/M2 EVERY 6 HOURS FOR 6 DOSES STARTING ON DAY 2
     Route: 048
  5. VINCRISTINE [Suspect]
     Indication: BREAST CANCER
     Dosage: DOSE: 1 MG ON DAY 1
     Route: 042
  6. RADIOTHERAPY [Suspect]
     Indication: BREAST CANCER
     Dosage: DOSE: 5,400 CGY
  7. DOXORUBICIN HCL [Suspect]
     Indication: BREAST CANCER
     Dosage: DOSE: 40 MG/M2 ON DAY 1
     Route: 042
  8. CYCLOPHOSPHAMIDE [Suspect]
     Indication: BREAST CANCER
     Dosage: DOSE: 100 MG/M2 ON DAYS 1 TO 7
     Route: 048

REACTIONS (1)
  - LIP AND/OR ORAL CAVITY CANCER [None]
